FAERS Safety Report 10146163 (Version 1)
Quarter: 2014Q2

REPORT INFORMATION
  Report Type: Spontaneous
  Country: US (occurrence: None)
  Receive Date: 20140430
  Receipt Date: 20140430
  Transmission Date: 20141212
  Serious: Yes (Hospitalization)
  Sender: FDA-Public Use
  Company Number: None

PATIENT
  Age: 56 Year
  Sex: Male

DRUGS (3)
  1. RIBASPHERE [Suspect]
     Indication: HEPATITIS C
     Dosage: 3 P QAM AND 2 PO QPM BID ORAL
     Route: 048
  2. PEGASYS 180 MCG/0.5 ML PFS 4X 0.5 ML KIT [Suspect]
     Indication: HEPATITIS C
     Dosage: 180 MCG ONCE EVERY WEEK SUBCUTANEOUS
     Route: 058
  3. SOVALDI [Concomitant]

REACTIONS (5)
  - Dyspnoea [None]
  - Dizziness [None]
  - Fatigue [None]
  - Haematocrit decreased [None]
  - Haemoglobin decreased [None]
